FAERS Safety Report 18870019 (Version 1)
Quarter: 2021Q1

REPORT INFORMATION
  Report Type: Spontaneous
  Country: US (occurrence: US)
  Receive Date: 20210210
  Receipt Date: 20210210
  Transmission Date: 20210420
  Serious: Yes (Hospitalization)
  Sender: FDA-Public Use
  Company Number: US-009507513-2102USA001913

PATIENT
  Age: 58 Year
  Sex: Female

DRUGS (5)
  1. DEXAMETHASONE. [Concomitant]
     Active Substance: DEXAMETHASONE
     Indication: BRAIN OEDEMA
     Dosage: UNK
  2. SULFAMETHOXAZOLE (+) TRIMETHOPRIM [Concomitant]
     Active Substance: SULFAMETHOXAZOLE\TRIMETHOPRIM
     Indication: ANTIFUNGAL PROPHYLAXIS
     Dosage: INDUCTION COURSE (6?WEEK COURSE)
  3. TEMODAR [Suspect]
     Active Substance: TEMOZOLOMIDE
     Indication: GLIOBLASTOMA
     Dosage: INDUCTION COURSE (6?WEEK COURSE)
     Route: 048
  4. DAPSONE. [Concomitant]
     Active Substance: DAPSONE
     Indication: ANTIFUNGAL PROPHYLAXIS
     Dosage: MAINENANCE THERAPY
  5. TEMODAR [Suspect]
     Active Substance: TEMOZOLOMIDE
     Dosage: MAINTENANCE THERAPY
     Route: 048

REACTIONS (3)
  - Exfoliative rash [Recovered/Resolved]
  - Rash erythematous [Unknown]
  - Rash erythematous [Recovered/Resolved]
